FAERS Safety Report 6263228-4 (Version None)
Quarter: 2009Q3

REPORT INFORMATION
  Report Type: 
  Country: None (occurrence: None)
  Receive Date: 20090710
  Receipt Date: 20080519
  Transmission Date: 20100115
  Serious: Yes (Other)
  Sender: FDA-Public Use
  Company Number: US-ASTRAZENECA-2008UW04311

PATIENT
  Age: 653 Month
  Sex: Female

DRUGS (13)
  1. SEROQUEL [Suspect]
     Indication: DEPRESSION
     Route: 048
     Dates: start: 19980101
  2. SEROQUEL [Suspect]
     Dosage: 100 MG- 200 MG
     Route: 048
     Dates: start: 20030408
  3. HYDROCODONE BITARTRATE + ACETAMINOPHEN [Concomitant]
     Dosage: 10-500 UNITS
  4. METFORMIN HYDROCHLORIDE [Concomitant]
  5. DIPHENHYDRAMINE HCL [Concomitant]
  6. METOCLOPRAMIDE [Concomitant]
  7. HYDROCHLOROTHIAZIDE [Concomitant]
     Dosage: 25 UNITS
  8. GLIPIZIDE [Concomitant]
  9. LORTAB [Concomitant]
  10. WELLBUTRIN [Concomitant]
  11. NAPROXEN [Concomitant]
  12. CYCLOBENZAPRINE [Concomitant]
  13. HYDROXYZINE EMBONATE [Concomitant]

REACTIONS (3)
  - DIABETES MELLITUS [None]
  - DIABETIC RETINOPATHY [None]
  - TYPE 2 DIABETES MELLITUS [None]
